FAERS Safety Report 23290052 (Version 3)
Quarter: 2024Q2

REPORT INFORMATION
  Report Type: Report from Study
  Country: US (occurrence: US)
  Receive Date: 20231212
  Receipt Date: 20240619
  Transmission Date: 20240716
  Serious: Yes (Other)
  Sender: FDA-Public Use
  Company Number: US-ABBVIE-5531764

PATIENT
  Age: 68 Year
  Sex: Female

DRUGS (1)
  1. SKYRIZI [Suspect]
     Active Substance: RISANKIZUMAB-RZAA
     Indication: Psoriatic arthropathy
     Route: 058
     Dates: start: 20230825

REACTIONS (6)
  - Knee arthroplasty [Not Recovered/Not Resolved]
  - Fall [Recovering/Resolving]
  - Nasopharyngitis [Unknown]
  - COVID-19 [Recovered/Resolved]
  - Knee operation [Recovering/Resolving]
  - Skeletal injury [Recovering/Resolving]

NARRATIVE: CASE EVENT DATE: 20231101
